FAERS Safety Report 10157156 (Version 1)
Quarter: 2014Q2

REPORT INFORMATION
  Report Type: Spontaneous
  Country: US (occurrence: US)
  Receive Date: 20140507
  Receipt Date: 20140507
  Transmission Date: 20141212
  Serious: No
  Sender: FDA-Public Use
  Company Number: US-PFIZER INC-2014123121

PATIENT
  Age: 88 Year
  Sex: Female

DRUGS (2)
  1. XALKORI [Suspect]
     Indication: LUNG NEOPLASM MALIGNANT
     Dosage: 250 MG, 2X/DAY
     Route: 048
     Dates: start: 20131004, end: 201404
  2. XALKORI [Suspect]
     Dosage: 250 MG, ALTERNATE DAY
     Route: 048
     Dates: start: 20140430

REACTIONS (5)
  - Disease progression [Unknown]
  - Lung neoplasm malignant [Unknown]
  - Peripheral swelling [Unknown]
  - Fluid retention [Unknown]
  - Weight increased [Recovering/Resolving]
